FAERS Safety Report 11072047 (Version 1)
Quarter: 2015Q2

REPORT INFORMATION
  Report Type: Spontaneous
  Country: US (occurrence: None)
  Receive Date: 20150427
  Receipt Date: 20150427
  Transmission Date: 20150821
  Serious: No
  Sender: FDA-Public Use
  Company Number: None

PATIENT
  Age: 32 Year
  Sex: Female
  Weight: 96.16 kg

DRUGS (8)
  1. CHLOROPHYLL [Concomitant]
  2. SIMILAC [Concomitant]
     Active Substance: DEXTROSE\WATER
  3. PRENATAL VITAMINS [Concomitant]
     Active Substance: VITAMINS
  4. ALEVE [Concomitant]
     Active Substance: NAPROXEN SODIUM
  5. ALFALFA [Concomitant]
     Active Substance: ALFALFA\ALFALFA WHOLE
  6. LEVENORGESTREL RELEASING IUD MIRENA [Suspect]
     Active Substance: LEVONORGESTREL
     Indication: CONTRACEPTION
     Dosage: 1 IUD
     Route: 067
  7. FIBER [Concomitant]
     Active Substance: PSYLLIUM HUSK
  8. ORCHARD AND GARDEN BLEND FENUGREEK [Concomitant]

REACTIONS (4)
  - Fatigue [None]
  - Menorrhagia [None]
  - Suppressed lactation [None]
  - Sleep disorder [None]

NARRATIVE: CASE EVENT DATE: 20150326
